FAERS Safety Report 6536102-3 (Version None)
Quarter: 2010Q1

REPORT INFORMATION
  Report Type: 
  Country: None (occurrence: None)
  Receive Date: 20100113
  Receipt Date: 20091002
  Transmission Date: 20100710
  Serious: No
  Sender: FDA-Public Use
  Company Number: US-ALLERGAN-0913710US

PATIENT
  Age: 68 Year
  Sex: Female

DRUGS (5)
  1. LATISSE [Suspect]
     Indication: HYPOTRICHOSIS
     Dosage: 1 GTT, QHS
     Route: 061
     Dates: start: 20090401
  2. EYELASH TINTING [Concomitant]
  3. VISINE EYE DROPS [Concomitant]
     Dosage: UNK
     Route: 047
  4. MASCARA [Concomitant]
     Dosage: UNK
  5. EYELINER [Concomitant]
     Dosage: UNK

REACTIONS (2)
  - HAIR GROWTH ABNORMAL [None]
  - MADAROSIS [None]
